FAERS Safety Report 10973590 (Version 1)
Quarter: 2015Q2

REPORT INFORMATION
  Report Type: Spontaneous
  Country: US (occurrence: US)
  Receive Date: 20150401
  Receipt Date: 20150401
  Transmission Date: 20150821
  Serious: Yes (Hospitalization, Other)
  Sender: FDA-Public Use
  Company Number: US-UCBSA-2014001173

PATIENT
  Age: 56 Year
  Sex: Male
  Weight: 87.53 kg

DRUGS (16)
  1. XYREM [Suspect]
     Active Substance: SODIUM OXYBATE
     Indication: NARCOLEPSY
     Dosage: 3 G, 2X/DAY (BID);DOSE STRENGTH: 500 MG/ML ; NIGHTLY
     Route: 048
     Dates: start: 200612, end: 2007
  2. XYREM [Suspect]
     Active Substance: SODIUM OXYBATE
     Indication: CATAPLEXY
     Dosage: DOSE STRENGTH: 500 MG/ML ; NIGHTLY; DOSE ADJUSTMENTS
     Route: 048
     Dates: start: 2007, end: 2007
  3. XYREM [Suspect]
     Active Substance: SODIUM OXYBATE
     Dosage: 4.5 G, 2X/DAY (BID);DOSE STRENGTH: 500 MG/ML ; NIGHTLY
     Route: 048
     Dates: start: 200707, end: 2009
  4. DULOXETINE HYDROCHLORIDE. [Concomitant]
     Active Substance: DULOXETINE HYDROCHLORIDE
     Indication: NEURALGIA
     Dosage: 60 MG, ONCE DAILY (QD)
     Route: 048
  5. XYREM [Suspect]
     Active Substance: SODIUM OXYBATE
     Dosage: 3 G, 2X/DAY (BID);DOSE STRENGTH: 500 MG/ML ; NIGHTLY
     Route: 048
     Dates: start: 201101, end: 2011
  6. ROPINIROLE HCL [Concomitant]
     Active Substance: ROPINIROLE HYDROCHLORIDE
     Indication: RESTLESS LEGS SYNDROME
     Dosage: 5 MG 2 TO 3 TIMES DAILY
     Route: 048
  7. PLAVIX [Concomitant]
     Active Substance: CLOPIDOGREL BISULFATE
     Indication: PRODUCT USED FOR UNKNOWN INDICATION
     Dosage: 75 MG, 2X/DAY (BID)
     Route: 048
  8. DULOXETINE HYDROCHLORIDE. [Concomitant]
     Active Substance: DULOXETINE HYDROCHLORIDE
     Indication: DEPRESSION
  9. PLAVIX [Concomitant]
     Active Substance: CLOPIDOGREL BISULFATE
     Dosage: UNK
  10. ASPIRIN. [Concomitant]
     Active Substance: ASPIRIN
     Indication: CARDIOVASCULAR EVENT PROPHYLAXIS
     Dosage: 325 MG, ONCE DAILY (QD)
     Route: 048
     Dates: start: 2004
  11. AMBIEN [Concomitant]
     Active Substance: ZOLPIDEM TARTRATE
     Indication: SLEEP DISORDER
     Dosage: DOSE UNKNOWN
  12. METOPROLOL - 1 A PHARMA [Concomitant]
     Indication: CARDIAC DISORDER
     Dosage: 25 MG, ONCE DAILY (QD)
     Route: 048
  13. ATORVASTATIN CALCIUM. [Concomitant]
     Active Substance: ATORVASTATIN CALCIUM
     Indication: PRODUCT USED FOR UNKNOWN INDICATION
     Dosage: 40 MG, ONCE DAILY (QD)
  14. XYREM [Suspect]
     Active Substance: SODIUM OXYBATE
     Dosage: 4.5 G, 2X/DAY (BID);DOSE STRENGTH: 500 MG/ML ; NIGHTLY
     Route: 048
     Dates: start: 201102
  15. MODAFINIL WYNN [Concomitant]
     Indication: NARCOLEPSY
     Dosage: 200 MG, ONCE DAILY (QD)
     Route: 048
  16. HYDROCODONE BITARTRATE AND ACETAMINOPHEN [Concomitant]
     Active Substance: ACETAMINOPHEN\HYDROCODONE BITARTRATE
     Indication: BACK PAIN
     Dosage: 10/325 MG: UPTO 3 PER DAY
     Route: 048

REACTIONS (5)
  - Myocardial infarction [Unknown]
  - Coronary angioplasty [Unknown]
  - Libido decreased [Unknown]
  - Migraine [Unknown]
  - Coronary arterial stent insertion [Unknown]

NARRATIVE: CASE EVENT DATE: 20140307
